FAERS Safety Report 5261120-5 (Version None)
Quarter: 2007Q1

REPORT INFORMATION
  Report Type: 
  Country: None (occurrence: None)
  Receive Date: 20070309
  Receipt Date: 20070301
  Transmission Date: 20070707
  Serious: Yes (Other)
  Sender: FDA-Public Use
  Company Number: US-ELI_LILLY_AND_COMPANY-US200703000190

PATIENT
  Sex: Female

DRUGS (3)
  1. ALIMTA [Suspect]
     Indication: VITAMIN SUPPLEMENTATION
     Route: 042
  2. CISPLATIN [Concomitant]
  3. VITAMINS NOS [Concomitant]

REACTIONS (1)
  - PLEURAL EFFUSION [None]
